FAERS Safety Report 24352979 (Version 1)
Quarter: 2024Q3

REPORT INFORMATION
  Report Type: Spontaneous
  Country: US (occurrence: US)
  Receive Date: 20240923
  Receipt Date: 20240923
  Transmission Date: 20241016
  Serious: No
  Sender: ROCHE
  Company Number: US-ROCHE-3478350

PATIENT
  Sex: Female

DRUGS (1)
  1. HERCEPTIN [Suspect]
     Active Substance: TRASTUZUMAB
     Indication: Product used for unknown indication
     Route: 041

REACTIONS (8)
  - Rhinitis [Unknown]
  - Localised infection [Unknown]
  - Anxiety [Unknown]
  - Dysphonia [Unknown]
  - Contusion [Not Recovered/Not Resolved]
  - Weight decreased [Unknown]
  - Nasal disorder [Unknown]
  - Paronychia [Unknown]
